FAERS Safety Report 4651512-7 (Version None)
Quarter: 2005Q2

REPORT INFORMATION
  Report Type: 
  Country: None (occurrence: None)
  Receive Date: 20050404
  Receipt Date: 20041109
  Transmission Date: 20051028
  Serious: No
  Sender: FDA-Public Use
  Company Number: USA041183669

PATIENT
  Age: 55 Year
  Sex: Female
  Weight: 72 kg

DRUGS (4)
  1. CYMBALTA [Suspect]
     Indication: DEPRESSION
     Dosage: 60 MG/1 DAY
     Dates: start: 20040913
  2. ALPRAZOLAM [Concomitant]
  3. DOXAZOSIN [Concomitant]
  4. AMITRIPTYLINE [Concomitant]

REACTIONS (2)
  - EARLY MORNING AWAKENING [None]
  - HYPERSOMNIA [None]
